FAERS Safety Report 21338586 (Version 1)
Quarter: 2022Q3

REPORT INFORMATION
  Report Type: Other
  Country: KR (occurrence: None)
  Receive Date: 20220915
  Receipt Date: 20220915
  Transmission Date: 20221027
  Serious: Yes (Hospitalization, Other)
  Sender: FDA-Public Use
  Company Number: KR-Nivagen-000020

PATIENT
  Age: 64 Year
  Sex: Female

DRUGS (5)
  1. DECITABINE [Suspect]
     Active Substance: DECITABINE
     Indication: Acute myeloid leukaemia
     Dosage: 20 MG/M2 PER DAY FOR 5 DAYS
  2. CEFAZOLIN [Concomitant]
     Active Substance: CEFAZOLIN
     Indication: Acute myeloid leukaemia
     Dosage: 2 G TWICE A DAY
     Route: 042
  3. MAXIPIME [Concomitant]
     Active Substance: CEFEPIME HYDROCHLORIDE
     Indication: Acute myeloid leukaemia
     Dosage: 2 G 3 TIMES A DAY
     Route: 042
  4. VANCOMYCIN [Concomitant]
     Active Substance: VANCOMYCIN
     Indication: Acute myeloid leukaemia
     Dosage: 1 G TWICE A DAY
  5. CLINDAMYCIN [Concomitant]
     Active Substance: CLINDAMYCIN
     Indication: Acute myeloid leukaemia
     Dosage: 600 MG 3 TIMES A DAY

REACTIONS (2)
  - Pyoderma gangrenosum [Recovered/Resolved]
  - Disease progression [Recovered/Resolved]
